FAERS Safety Report 6468182-8 (Version None)
Quarter: 2009Q4

REPORT INFORMATION
  Report Type: 
  Country: None (occurrence: None)
  Receive Date: 20091127
  Receipt Date: 20091012
  Transmission Date: 20100525
  Serious: Yes (Other)
  Sender: FDA-Public Use
  Company Number: 2009AL007235

PATIENT
  Age: 54 Year
  Sex: Male

DRUGS (7)
  1. SULFATRIM PEDIATRIC [Suspect]
     Indication: ANTIFUNGAL PROPHYLAXIS
     Dosage: PNEUMOCYSTIS CARINII PROPHYLAXIS
     Dates: start: 20090303
  2. ABACAVIR [Concomitant]
  3. LAMIVUDINE [Concomitant]
  4. SUSTIVA [Concomitant]
  5. TRAMADOL HCL [Concomitant]
  6. METOCLOPRAMIDE [Concomitant]
  7. SENOKOT [Concomitant]

REACTIONS (2)
  - CD4 LYMPHOCYTES DECREASED [None]
  - NON-HODGKIN'S LYMPHOMA [None]
